APPROVED DRUG PRODUCT: IBANDRONATE SODIUM
Active Ingredient: IBANDRONATE SODIUM
Strength: EQ 3MG BASE/3ML
Dosage Form/Route: INJECTABLE;INTRAVENOUS
Application: A204329 | Product #001
Applicant: NANG KUANG PHARMACEUTICAL CO LTD
Approved: Jun 16, 2021 | RLD: No | RS: No | Type: DISCN